FAERS Safety Report 8202738-7 (Version None)
Quarter: 2012Q1

REPORT INFORMATION
  Report Type: 
  Country: None (occurrence: None)
  Receive Date: 20120312
  Receipt Date: 20120306
  Transmission Date: 20120608
  Serious: Yes (Hospitalization, Other)
  Sender: FDA-Public Use
  Company Number: BR-PFIZER INC-2012059874

PATIENT
  Age: 65 Year
  Sex: Male

DRUGS (2)
  1. DIURIX [Concomitant]
     Indication: BLOOD URIC ACID
     Dosage: UNK
     Dates: start: 19920101
  2. LIPITOR [Suspect]
     Indication: BLOOD CHOLESTEROL
     Dosage: 20 MG, 1X/DAY (HALF TABLET DAILY)
     Route: 048
     Dates: start: 20070101

REACTIONS (3)
  - HYPERTENSION [None]
  - PAIN [None]
  - SPINAL OSTEOARTHRITIS [None]
